FAERS Safety Report 6671675-1 (Version None)
Quarter: 2010Q2

REPORT INFORMATION
  Report Type: 
  Country: None (occurrence: None)
  Receive Date: 20100406
  Receipt Date: 20100406
  Transmission Date: 20101027
  Serious: Yes (Life-Threatening, Hospitalization)
  Sender: FDA-Public Use
  Company Number: None

PATIENT
  Age: 85 Year
  Sex: Male
  Weight: 61 kg

DRUGS (1)
  1. DIETHYL-STILBESTROL TAB [Suspect]
     Indication: PROSTATE CANCER
     Dosage: 2 MG EVERY DAY PO
     Route: 048
     Dates: start: 20100127, end: 20100311

REACTIONS (2)
  - NO THERAPEUTIC RESPONSE [None]
  - PULMONARY EMBOLISM [None]
